FAERS Safety Report 10271130 (Version 1)
Quarter: 2014Q3

REPORT INFORMATION
  Report Type: Spontaneous
  Country: DE (occurrence: DE)
  Receive Date: 20140701
  Receipt Date: 20140701
  Transmission Date: 20150326
  Serious: Yes (Other)
  Sender: FDA-Public Use
  Company Number: DE-WATSON-2014-14158

PATIENT
  Age: 41 Year
  Sex: Male

DRUGS (4)
  1. SUCCINYLCHOLINE [Concomitant]
     Active Substance: SUCCINYLCHOLINE
     Indication: ANAESTHESIA
     Dosage: 150 MG, UNKNOWN
     Route: 065
  2. BUPROPION HYDROCHLORIDE (WATSON LABORATORIES) [Suspect]
     Active Substance: BUPROPION HYDROCHLORIDE
     Dosage: 150 UNK, UNK
     Route: 065
  3. ETOMIDATE. [Concomitant]
     Active Substance: ETOMIDATE
     Indication: ANAESTHESIA
     Dosage: 30 MG, UNKNOWN
     Route: 065
  4. BUPROPION HYDROCHLORIDE (WATSON LABORATORIES) [Suspect]
     Active Substance: BUPROPION HYDROCHLORIDE
     Indication: DEPRESSION SUICIDAL
     Dosage: 300 MG, UNKNOWN
     Route: 065

REACTIONS (2)
  - Status epilepticus [Recovered/Resolved]
  - Partial seizures with secondary generalisation [Recovered/Resolved]
